FAERS Safety Report 11768782 (Version 10)
Quarter: 2020Q3

REPORT INFORMATION
  Report Type: Spontaneous
  Country: ES (occurrence: ES)
  Receive Date: 20151123
  Receipt Date: 20200721
  Transmission Date: 20201102
  Serious: Yes (Hospitalization, Other)
  Sender: FDA-Public Use
  Company Number: PHHY2015ES148434

PATIENT
  Age: 74 Year
  Sex: Female

DRUGS (25)
  1. DILTIAZEM. [Interacting]
     Active Substance: DILTIAZEM
     Indication: PRODUCT USED FOR UNKNOWN INDICATION
     Dosage: 120 MG,QD
     Route: 065
  2. METHYLPREDNISOLONE. [Interacting]
     Active Substance: METHYLPREDNISOLONE
     Indication: ERYTHEMA
     Dosage: UNK UNK,UNK
     Route: 061
  3. DIGOXIN. [Suspect]
     Active Substance: DIGOXIN
     Indication: CARDIAC FAILURE CONGESTIVE
     Dosage: 0.125 MG, QD
     Route: 065
  4. DIGOXIN. [Interacting]
     Active Substance: DIGOXIN
     Indication: ATRIAL FIBRILLATION
     Dosage: 0.13 MG, QD
     Route: 065
  5. METHOTREXATE. [Interacting]
     Active Substance: METHOTREXATE
     Indication: PRODUCT USED FOR UNKNOWN INDICATION
     Dosage: 2.5 MG,QW
     Route: 065
  6. ALPRAZOLAM. [Interacting]
     Active Substance: ALPRAZOLAM
     Indication: DISORIENTATION
  7. DIGOXIN. [Interacting]
     Active Substance: DIGOXIN
     Dosage: 125 MG,QD
     Route: 065
  8. BISOPROLOL [Interacting]
     Active Substance: BISOPROLOL
     Indication: PRODUCT USED FOR UNKNOWN INDICATION
     Dosage: 5 MG,QW
     Route: 065
  9. METHOTREXATE. [Interacting]
     Active Substance: METHOTREXATE
     Dosage: 5 MG,QW
     Route: 065
  10. CLOBETASOL [Interacting]
     Active Substance: CLOBETASOL
     Indication: PRODUCT USED FOR UNKNOWN INDICATION
     Dosage: UNK UNK,UNK
     Route: 061
  11. ENOXAPARIN [Interacting]
     Active Substance: ENOXAPARIN
     Indication: PRODUCT USED FOR UNKNOWN INDICATION
     Dosage: 40 MG,QD
     Route: 065
  12. RAMIPRIL. [Interacting]
     Active Substance: RAMIPRIL
     Indication: PRODUCT USED FOR UNKNOWN INDICATION
     Dosage: 5 MG,QD
     Route: 065
  13. PREDNISONE. [Interacting]
     Active Substance: PREDNISONE
     Indication: ERYTHRODERMIC PSORIASIS
     Dosage: 0.5 MG/KG, QD
     Route: 048
  14. FOLIC ACID. [Interacting]
     Active Substance: FOLIC ACID
     Indication: PROPHYLAXIS
     Dosage: 5 MG,QW
     Route: 065
  15. APO?CLORAZEPATE [Interacting]
     Active Substance: CLORAZEPATE DIPOTASSIUM
     Indication: PRODUCT USED FOR UNKNOWN INDICATION
     Dosage: 5 MG,QD
     Route: 065
  16. INSULIN [Concomitant]
     Active Substance: INSULIN NOS
     Indication: PRODUCT USED FOR UNKNOWN INDICATION
     Dosage: 100 IU, QD
     Route: 065
  17. OMEPRAZOLE. [Interacting]
     Active Substance: OMEPRAZOLE
     Indication: PRODUCT USED FOR UNKNOWN INDICATION
     Dosage: 20 MG,QD
     Route: 065
  18. HYDROCORTISONE. [Interacting]
     Active Substance: HYDROCORTISONE
     Indication: ERYTHRODERMIC PSORIASIS
     Dosage: UNK MG
     Route: 061
  19. CLORAZEPATE DIPOTASSIUM. [Interacting]
     Active Substance: CLORAZEPATE DIPOTASSIUM
     Indication: PRODUCT USED FOR UNKNOWN INDICATION
     Dosage: 5 MG, QD
     Route: 065
  20. HYDROCHLOROTHIAZIDE. [Interacting]
     Active Substance: HYDROCHLOROTHIAZIDE
     Indication: CHRONIC KIDNEY DISEASE
     Dosage: 25 MG,QD
     Route: 065
  21. BISOPROLOL [Interacting]
     Active Substance: BISOPROLOL
     Dosage: 2.5 MG,QD
     Route: 065
  22. FUROSEMIDE. [Interacting]
     Active Substance: FUROSEMIDE
     Indication: CHRONIC KIDNEY DISEASE
     Dosage: 60 MG,QD
     Route: 065
  23. ACENOCOUMAROL [Interacting]
     Active Substance: ACENOCOUMAROL
     Indication: PRODUCT USED FOR UNKNOWN INDICATION
     Dosage: 1 MG,QD
     Route: 065
  24. ALPRAZOLAM. [Interacting]
     Active Substance: ALPRAZOLAM
     Indication: EUPHORIC MOOD
     Dosage: UNK UNK,UNK
     Route: 048
  25. METHYLPREDNISOLONE. [Interacting]
     Active Substance: METHYLPREDNISOLONE
     Indication: ERYTHRODERMIC PSORIASIS

REACTIONS (12)
  - Disorientation [Unknown]
  - Hypertransaminasaemia [Recovered/Resolved]
  - Euphoric mood [Unknown]
  - Toxicity to various agents [Recovered/Resolved]
  - Erythema [Recovered/Resolved]
  - Psoriasis [Unknown]
  - Erythrodermic psoriasis [Recovered/Resolved]
  - Transaminases increased [Recovering/Resolving]
  - Somnolence [Unknown]
  - Drug interaction [Unknown]
  - Condition aggravated [Recovered/Resolved]
  - Stupor [Unknown]
